FAERS Safety Report 5047807-8 (Version None)
Quarter: 2006Q3

REPORT INFORMATION
  Report Type: 
  Country: None (occurrence: None)
  Receive Date: 20060710
  Receipt Date: 20060710
  Transmission Date: 20061208
  Serious: Yes (Hospitalization)
  Sender: FDA-Public Use
  Company Number: None

PATIENT
  Sex: Female
  Weight: 67.1324 kg

DRUGS (1)
  1. SEPTRA DS [Suspect]
     Indication: URINARY TRACT INFECTION
     Dosage: 1 TABLET BID PO
     Route: 048
     Dates: start: 20060605, end: 20060607

REACTIONS (6)
  - LETHARGY [None]
  - MALAISE [None]
  - PYREXIA [None]
  - THROMBOTIC THROMBOCYTOPENIC PURPURA [None]
  - VOMITING [None]
  - WHITE BLOOD CELL COUNT DECREASED [None]
